FAERS Safety Report 9010170 (Version 2)
Quarter: 2013Q1

REPORT INFORMATION
  Report Type: Spontaneous
  Country: US (occurrence: US)
  Receive Date: 20130110
  Receipt Date: 20130228
  Transmission Date: 20140127
  Serious: No
  Sender: FDA-Public Use
  Company Number: PHEH2013US000781

PATIENT
  Sex: Female

DRUGS (2)
  1. DIOVAN HCT [Suspect]
     Dosage: UNK UKN, UNK
  2. HUMULIN [Concomitant]
     Dosage: UNK UKN, UNK

REACTIONS (4)
  - Malaise [Unknown]
  - Presyncope [Unknown]
  - Gait disturbance [Unknown]
  - Arthritis [Unknown]
